FAERS Safety Report 14108577 (Version 2)
Quarter: 2017Q4

REPORT INFORMATION
  Report Type: Spontaneous
  Country: US (occurrence: US)
  Receive Date: 20171019
  Receipt Date: 20171103
  Transmission Date: 20180321
  Serious: Yes (Death, Other)
  Sender: FDA-Public Use
  Company Number: US-ENDO PHARMACEUTICALS INC-2017-005553

PATIENT
  Age: 78 Year
  Sex: Male

DRUGS (1)
  1. XIAFLEX [Suspect]
     Active Substance: COLLAGENASE CLOSTRIDIUM HISTOLYTICUM
     Indication: PLANTAR FASCIAL FIBROMATOSIS
     Dosage: UNK, ONE TREATMENT, SINGLE
     Route: 065
     Dates: start: 20170223, end: 20170223

REACTIONS (5)
  - Malignant pleural effusion [Unknown]
  - Off label use [Recovered/Resolved]
  - Hepatic function abnormal [Unknown]
  - Lung neoplasm malignant [Unknown]
  - Death [Fatal]

NARRATIVE: CASE EVENT DATE: 2017
